FAERS Safety Report 20662738 (Version 3)
Quarter: 2022Q2

REPORT INFORMATION
  Report Type: Report from Study
  Country: DE (occurrence: DE)
  Receive Date: 20220401
  Receipt Date: 20220506
  Transmission Date: 20220720
  Serious: No
  Sender: FDA-Public Use
  Company Number: DE-KARYOPHARM-2022KPT000178

PATIENT
  Age: 81 Year
  Sex: Male

DRUGS (4)
  1. SELINEXOR [Suspect]
     Active Substance: SELINEXOR
     Indication: Plasma cell myeloma
     Dosage: 80 MG, 2X/WEEK ON DAY 1 AND 3
     Route: 048
     Dates: start: 20211124
  2. DEXAMETHASONE [Concomitant]
     Active Substance: DEXAMETHASONE
     Indication: Plasma cell myeloma
     Dosage: UNK, WEEKLY
     Route: 048
     Dates: start: 20211124
  3. GRANISETRON [Concomitant]
     Active Substance: GRANISETRON
     Indication: Antiemetic supportive care
  4. APREPITANT [Concomitant]
     Active Substance: APREPITANT
     Indication: Antiemetic supportive care

REACTIONS (2)
  - Plasma cell myeloma [Unknown]
  - Thrombocytopenia [Unknown]

NARRATIVE: CASE EVENT DATE: 20211222
